FAERS Safety Report 5110589-5 (Version None)
Quarter: 2006Q3

REPORT INFORMATION
  Report Type: 
  Country: None (occurrence: None)
  Receive Date: 20060731
  Receipt Date: 20060613
  Transmission Date: 20061208
  Serious: No
  Sender: FDA-Public Use
  Company Number: 2006PV015524

PATIENT
  Age: 56 Year
  Sex: Female
  Weight: 124.7392 kg

DRUGS (6)
  1. BYETTA [Suspect]
     Indication: DIABETES MELLITUS NON-INSULIN-DEPENDENT
     Dosage: SEE IMAGE
     Route: 058
     Dates: start: 20060323, end: 20060524
  2. BYETTA [Suspect]
     Indication: DIABETES MELLITUS NON-INSULIN-DEPENDENT
     Dosage: SEE IMAGE
     Route: 058
     Dates: start: 20060524
  3. GLYBURIDE [Concomitant]
  4. GLYBURIDE AND METFORMIN [Concomitant]
  5. ZANTAC [Concomitant]
  6. ACIPHEX [Concomitant]

REACTIONS (6)
  - BLOOD GLUCOSE DECREASED [None]
  - BLOOD GLUCOSE INCREASED [None]
  - ERUCTATION [None]
  - FLATULENCE [None]
  - NAUSEA [None]
  - VOMITING [None]
